FAERS Safety Report 9335440 (Version 1)
Quarter: 2013Q2

REPORT INFORMATION
  Report Type: Report from Study
  Country: NL (occurrence: NL)
  Receive Date: 20130606
  Receipt Date: 20130606
  Transmission Date: 20140414
  Serious: Yes (Hospitalization)
  Sender: FDA-Public Use
  Company Number: NL-TEVA-409749ISR

PATIENT
  Age: 54 Year
  Sex: Female

DRUGS (4)
  1. MYOCET [Suspect]
  2. PACLITAXEL [Suspect]
     Indication: BREAST CANCER METASTATIC
     Dosage: 160 MILLIGRAM DAILY;
     Route: 042
     Dates: start: 20111101, end: 20120110
  3. BEVACIZUMAB [Suspect]
     Indication: BREAST CANCER METASTATIC
     Dosage: 750 MILLIGRAM DAILY;
     Route: 042
     Dates: start: 20111101, end: 20120110
  4. OMEPRAZOLE [Concomitant]
     Dosage: 20 MILLIGRAM DAILY;

REACTIONS (1)
  - Gastroenteritis [Recovered/Resolved]
